FAERS Safety Report 22375066 (Version 1)
Quarter: 2023Q2

REPORT INFORMATION
  Report Type: Report from Study
  Country: US (occurrence: US)
  Receive Date: 20230527
  Receipt Date: 20230527
  Transmission Date: 20230721
  Serious: No
  Sender: FDA-Public Use
  Company Number: US-002147023-NVSC2023US121633

PATIENT
  Sex: Female
  Weight: 89.81 kg

DRUGS (1)
  1. COSENTYX [Suspect]
     Active Substance: SECUKINUMAB
     Indication: Psoriasis
     Dosage: UNK
     Route: 065

REACTIONS (9)
  - Pain [Unknown]
  - Hyperhidrosis [Unknown]
  - Hypoaesthesia [Unknown]
  - Fatigue [Unknown]
  - Arthralgia [Unknown]
  - Pain in extremity [Unknown]
  - Swelling [Unknown]
  - Dry skin [Unknown]
  - Drug effect less than expected [Unknown]
